FAERS Safety Report 8879937 (Version 1)
Quarter: 2012Q4

REPORT INFORMATION
  Report Type: 
  Country: US (occurrence: US)
  Receive Date: 20121101
  Receipt Date: 20121101
  Transmission Date: 20130627
  Serious: Yes (Death)
  Sender: FDA-Public Use
  Company Number: US-PFIZER INC-2012269255

PATIENT
  Sex: Female

DRUGS (2)
  1. MS CONTIN [Suspect]
     Dosage: UNK
     Route: 048
  2. BUTRANS [Suspect]
     Dosage: UNK
     Route: 062

REACTIONS (2)
  - Overdose [Fatal]
  - Death [Fatal]
